FAERS Safety Report 4881964-9 (Version None)
Quarter: 2006Q1

REPORT INFORMATION
  Report Type: 
  Country: None (occurrence: None)
  Receive Date: 20060117
  Receipt Date: 20060105
  Transmission Date: 20060701
  Serious: Yes (Hospitalization)
  Sender: FDA-Public Use
  Company Number: FR-GLAXOSMITHKLINE-B0405802B

PATIENT
  Age: 4 Day
  Sex: Female

DRUGS (9)
  1. RETROVIR [Suspect]
     Indication: ANTIVIRAL PROPHYLAXIS
     Route: 048
     Dates: start: 19990521
  2. EPIVIR [Suspect]
     Indication: ANTIVIRAL PROPHYLAXIS
     Route: 048
     Dates: start: 19990521
  3. VIRAMUNE [Suspect]
     Indication: ANTIVIRAL PROPHYLAXIS
     Route: 048
     Dates: start: 19990523, end: 19990523
  4. RETROVIR [Suspect]
     Dates: start: 19990521, end: 19990521
  5. RETROVIR [Suspect]
  6. EPIVIR [Suspect]
  7. VIRAMUNE [Suspect]
     Dates: start: 19990521, end: 19990521
  8. IRON [Concomitant]
  9. VITAMINS [Concomitant]

REACTIONS (8)
  - ALANINE AMINOTRANSFERASE INCREASED [None]
  - ANAEMIA MACROCYTIC [None]
  - APNOEA [None]
  - ASPARTATE AMINOTRANSFERASE INCREASED [None]
  - DRUG EXPOSURE DURING PREGNANCY [None]
  - HYPERTONIA [None]
  - HYPERTRIGLYCERIDAEMIA [None]
  - NEUTROPENIA [None]
